FAERS Safety Report 14566799 (Version 1)
Quarter: 2018Q1

REPORT INFORMATION
  Report Type: Spontaneous
  Country: CA (occurrence: CA)
  Receive Date: 20180223
  Receipt Date: 20180223
  Transmission Date: 20180509
  Serious: Yes (Hospitalization, Other)
  Sender: FDA-Public Use
  Company Number: CA-ORION CORPORATION ORION PHARMA-TREX2018-0506

PATIENT
  Age: 45 Year
  Sex: Male

DRUGS (12)
  1. DESOXIMETASONE. [Suspect]
     Active Substance: DESOXIMETASONE
     Route: 048
  2. GOLD [Suspect]
     Active Substance: GOLD
     Route: 065
  3. PLAQUENIL [Concomitant]
     Active Substance: HYDROXYCHLOROQUINE SULFATE
     Route: 065
  4. METHOTREXATE (TRADE NAME UNKNOWN) [Suspect]
     Active Substance: METHOTREXATE
     Indication: RHEUMATOID ARTHRITIS
     Route: 065
  5. ENBREL [Suspect]
     Active Substance: ETANERCEPT
     Indication: RHEUMATOID ARTHRITIS
     Route: 065
  6. ARAVA [Concomitant]
     Active Substance: LEFLUNOMIDE
     Route: 065
  7. REMICADE [Suspect]
     Active Substance: INFLIXIMAB
     Indication: RHEUMATOID ARTHRITIS
     Route: 042
  8. SULFASALAZINE. [Concomitant]
     Active Substance: SULFASALAZINE
     Route: 065
  9. APO-WARFARIN [Suspect]
     Active Substance: WARFARIN SODIUM
     Route: 065
  10. IBUPROFEN. [Concomitant]
     Active Substance: IBUPROFEN
     Route: 065
  11. APO-PREDNISONE [Suspect]
     Active Substance: PREDNISONE
     Route: 065
  12. TYLENOL [Concomitant]
     Active Substance: ACETAMINOPHEN
     Route: 065

REACTIONS (19)
  - Nail disorder [Unknown]
  - Anxiety [Unknown]
  - Rheumatoid arthritis [Unknown]
  - Aortic bruit [Unknown]
  - Nephrolithiasis [Unknown]
  - Arthropathy [Unknown]
  - Skin exfoliation [Unknown]
  - Deformity [Unknown]
  - Drug hypersensitivity [Unknown]
  - Surgery [Unknown]
  - Wrist deformity [Unknown]
  - Elbow operation [Unknown]
  - Drug ineffective [Unknown]
  - Gastrointestinal haemorrhage [Unknown]
  - Ankle deformity [Unknown]
  - Fibromyalgia [Unknown]
  - Hypertension [Unknown]
  - Shoulder arthroplasty [Unknown]
  - Mobility decreased [Unknown]
